FAERS Safety Report 12183167 (Version 1)
Quarter: 2016Q1

REPORT INFORMATION
  Report Type: Spontaneous
  Country: US (occurrence: None)
  Receive Date: 20160315
  Receipt Date: 20160315
  Transmission Date: 20160526
  Serious: No
  Sender: FDA-Public Use
  Company Number: None

PATIENT
  Age: 24 Year
  Sex: Female
  Weight: 49.9 kg

DRUGS (1)
  1. ESTRADIOL. [Suspect]
     Active Substance: ESTRADIOL
     Indication: ENDOMETRIAL DISORDER
     Dosage: 1 ONCE DAILY APPLIED AS MEDICATED PATCH TO SKIN
     Dates: start: 20160314, end: 20160314

REACTIONS (5)
  - Nausea [None]
  - Headache [None]
  - Hot flush [None]
  - Dizziness [None]
  - Pyrexia [None]

NARRATIVE: CASE EVENT DATE: 20160314
